FAERS Safety Report 10102671 (Version 3)
Quarter: 2014Q2

REPORT INFORMATION
  Report Type: Spontaneous
  Country: PT (occurrence: PT)
  Receive Date: 20140424
  Receipt Date: 20140507
  Transmission Date: 20141212
  Serious: Yes (Other)
  Sender: FDA-Public Use
  Company Number: PT-ROCHE-1346752

PATIENT
  Sex: Female

DRUGS (16)
  1. ROACTEMRA [Suspect]
     Indication: RHEUMATOID ARTHRITIS
     Route: 042
  2. LEDERTREXATE [Suspect]
     Indication: RHEUMATOID ARTHRITIS
     Route: 065
  3. LEDERTREXATE [Suspect]
     Route: 065
  4. LEDERTREXATE [Suspect]
     Route: 065
  5. OMEPRAZOLE [Concomitant]
     Indication: PROPHYLAXIS AGAINST GASTROINTESTINAL ULCER
     Route: 048
  6. RAMIPRIL [Concomitant]
     Indication: HYPERTENSION
     Route: 048
  7. ADALAT CR 30 [Concomitant]
     Indication: HYPERTENSION
     Route: 048
  8. THYRAX [Concomitant]
     Indication: HYPOTHYROIDISM
     Route: 048
  9. LYRICA [Concomitant]
     Indication: NEURALGIA
     Route: 048
  10. LEPICORTINOLO [Concomitant]
     Indication: RHEUMATOID ARTHRITIS
     Route: 048
  11. ATORVA [Concomitant]
  12. MELOXICAM [Concomitant]
     Indication: RHEUMATOID ARTHRITIS
     Route: 048
  13. VIGANTOL [Concomitant]
     Indication: HYPOVITAMINOSIS
     Route: 048
  14. LEDERFOLINE [Concomitant]
     Route: 048
  15. ACETYLSALICYLIC ACID [Concomitant]
     Indication: ANTIPLATELET THERAPY
     Route: 048
  16. PREDNISOLONE [Concomitant]
     Route: 065

REACTIONS (15)
  - Vertigo [Unknown]
  - Headache [Unknown]
  - Tremor [Unknown]
  - Tinnitus [Unknown]
  - Oral mucosal blistering [Unknown]
  - Odynophagia [Unknown]
  - Pyrexia [Unknown]
  - Pruritus [Unknown]
  - Oedema [Unknown]
  - Arthralgia [Unknown]
  - Intermittent claudication [Not Recovered/Not Resolved]
  - Ulcer [Unknown]
  - Swelling [Unknown]
  - Synovitis [Unknown]
  - Transaminases increased [Unknown]
